FAERS Safety Report 5178231-5 (Version None)
Quarter: 2006Q4

REPORT INFORMATION
  Report Type: 
  Country: None (occurrence: None)
  Receive Date: 20061208
  Receipt Date: 20061128
  Transmission Date: 20070319
  Serious: Yes (Death, Hospitalization)
  Sender: FDA-Public Use
  Company Number: 2006006757

PATIENT
  Age: 49 Year
  Sex: Female
  Weight: 80 kg

DRUGS (1)
  1. SU-011, 248 (SUNITINIB MALATE) [Suspect]
     Indication: GASTROINTESTINAL STROMAL TUMOUR
     Dosage: 37.5 MG (37.5 MG, ONCE, DAYLY, CYCLIC), ORAL
     Route: 048
     Dates: start: 20051228, end: 20051230

REACTIONS (6)
  - GASTROINTESTINAL HAEMORRHAGE [None]
  - GASTROINTESTINAL PERFORATION [None]
  - MELAENA [None]
  - NEUTROPENIA [None]
  - PERITONITIS [None]
  - RECTAL HAEMORRHAGE [None]
